FAERS Safety Report 11871132 (Version 2)
Quarter: 2016Q1

REPORT INFORMATION
  Report Type: Spontaneous
  Country: IT (occurrence: IT)
  Receive Date: 20151228
  Receipt Date: 20160105
  Transmission Date: 20160526
  Serious: Yes (Hospitalization)
  Sender: FDA-Public Use
  Company Number: IT-PFIZER INC-2015177903

PATIENT
  Age: 49 Year
  Sex: Female
  Weight: 51 kg

DRUGS (5)
  1. ALLOPURINOLO TEVA ITALIA [Suspect]
     Active Substance: ALLOPURINOL
     Indication: URATE NEPHROPATHY
     Dosage: 300 MG, 1X/DAY
     Route: 048
     Dates: start: 20150401, end: 20150420
  2. MEROPENEM HIKMA [Suspect]
     Active Substance: MEROPENEM
     Indication: FEBRILE NEUTROPENIA
     Dosage: 3 G, 1X/DAY
     Route: 042
     Dates: start: 20150409, end: 20150420
  3. AMBISOME [Suspect]
     Active Substance: AMPHOTERICIN B
     Indication: FEBRILE NEUTROPENIA
     Dosage: 150 MG, 1X/DAY
     Route: 042
     Dates: start: 20150417, end: 20150419
  4. ZYVOXID [Suspect]
     Active Substance: LINEZOLID
     Indication: FEBRILE NEUTROPENIA
     Dosage: 1200 MG, 1X/DAY
     Route: 042
     Dates: start: 20150414, end: 20150520
  5. ZARZIO [Suspect]
     Active Substance: FILGRASTIM
     Indication: NEUTROPENIA
     Dosage: 150 ?G, 1X/DAY
     Route: 058
     Dates: start: 20150414, end: 20150420

REACTIONS (4)
  - Rash maculo-papular [Recovered/Resolved]
  - Oedema [Recovered/Resolved]
  - Pruritus [Recovered/Resolved]
  - Purpura [Recovered/Resolved]

NARRATIVE: CASE EVENT DATE: 20150418
